FAERS Safety Report 19711513 (Version 1)
Quarter: 2021Q3

REPORT INFORMATION
  Report Type: Spontaneous
  Country: US (occurrence: US)
  Receive Date: 20210816
  Receipt Date: 20210816
  Transmission Date: 20211014
  Serious: Yes (Death, Hospitalization)
  Sender: FDA-Public Use
  Company Number: US-MYLANLABS-2021M1051639

PATIENT
  Age: 75 Year
  Sex: Male

DRUGS (6)
  1. METHOTREXATE. [Suspect]
     Active Substance: METHOTREXATE
     Indication: PROPHYLACTIC CHEMOTHERAPY
     Route: 037
  2. RITUXIMAB. [Suspect]
     Active Substance: RITUXIMAB
     Indication: DIFFUSE LARGE B-CELL LYMPHOMA
     Dosage: UNK UNK, CYCLE AS A PART OF R?CHOP REGIMEN; 5 CYCLES OF R?CHOP REGIMEN
     Route: 065
  3. PREDNISONE. [Suspect]
     Active Substance: PREDNISONE
     Indication: DIFFUSE LARGE B-CELL LYMPHOMA
     Dosage: AS A PART OF R?CHOP REGIMEN; 5 CYCLES OF R?CHOP REGIMEN
     Route: 065
  4. CYCLOPHOSPHAMIDE. [Suspect]
     Active Substance: CYCLOPHOSPHAMIDE
     Indication: DIFFUSE LARGE B-CELL LYMPHOMA
     Dosage: UNK UNK, CYCLEAS A PART OF R?CHOP REGIMEN; 5 CYCLES OF R?CHOP REGIMEN
     Route: 065
  5. VINCRISTINE [Suspect]
     Active Substance: VINCRISTINE
     Indication: DIFFUSE LARGE B-CELL LYMPHOMA
     Dosage: UNK UNK, CYCLEAS A PART OF R?CHOP REGIMEN; 5 CYCLES OF R?CHOP REGIMEN
     Route: 065
  6. DOXORUBICIN [Suspect]
     Active Substance: DOXORUBICIN
     Indication: DIFFUSE LARGE B-CELL LYMPHOMA
     Dosage: UNK UNK, CYCLEAS A PART OF R?CHOP REGIMEN; 5 CYCLES OF R?CHOP REGIMEN
     Route: 065

REACTIONS (6)
  - Viral load increased [Fatal]
  - Respiratory failure [Fatal]
  - Atrial fibrillation [Unknown]
  - COVID-19 [Fatal]
  - Pulmonary fibrosis [Unknown]
  - Cerebrovascular accident [Unknown]

NARRATIVE: CASE EVENT DATE: 2020
